FAERS Safety Report 8142536-6 (Version None)
Quarter: 2012Q1

REPORT INFORMATION
  Report Type: 
  Country: None (occurrence: None)
  Receive Date: 20120216
  Receipt Date: 20120209
  Transmission Date: 20120608
  Serious: Yes (Other)
  Sender: FDA-Public Use
  Company Number: US-TEVA-321889USA

PATIENT
  Sex: Female

DRUGS (1)
  1. VALACICLOVIR [Suspect]
     Dates: start: 20110101

REACTIONS (4)
  - SKIN HAEMORRHAGE [None]
  - HEPATIC ENZYME INCREASED [None]
  - AUTOIMMUNE HEPATITIS [None]
  - BILIARY CIRRHOSIS PRIMARY [None]
